FAERS Safety Report 7411446-1 (Version None)
Quarter: 2011Q2

REPORT INFORMATION
  Report Type: 
  Country: None (occurrence: None)
  Receive Date: 20110413
  Receipt Date: 20110331
  Transmission Date: 20111010
  Serious: Yes (Hospitalization)
  Sender: FDA-Public Use
  Company Number: DE-RANBAXY-2011RR-43606

PATIENT
  Age: 38 Year
  Sex: Female

DRUGS (7)
  1. IBUPROFEN [Suspect]
     Dosage: 600 MG, QD
     Route: 048
     Dates: start: 20101206, end: 20101208
  2. CITALOPRAM [Suspect]
     Indication: DEPRESSION
     Dosage: 10 MG, QD
     Route: 048
     Dates: start: 20101202
  3. SEROQUEL [Suspect]
     Dosage: 150 MG, QD
     Route: 048
     Dates: start: 20101209, end: 20101210
  4. IBUPROFEN [Suspect]
     Dosage: 800 MG, QD
     Route: 048
     Dates: start: 20101206, end: 20101208
  5. SEROQUEL [Suspect]
     Indication: DEPRESSION
     Dosage: 50 MG, QD
     Route: 048
     Dates: start: 20101202, end: 20101205
  6. SEROQUEL [Suspect]
     Dosage: 100 MG, QD
     Route: 048
     Dates: start: 20101206, end: 20101208
  7. ALBUTEROL SULFATE AUTOHALER [Concomitant]
     Dosage: 0.24 MG, QD
     Route: 048
     Dates: start: 20000101

REACTIONS (1)
  - OEDEMA [None]
